FAERS Safety Report 24276408 (Version 1)
Quarter: 2024Q3

REPORT INFORMATION
  Report Type: Spontaneous
  Country: JP (occurrence: JP)
  Receive Date: 20240903
  Receipt Date: 20240903
  Transmission Date: 20241016
  Serious: Yes (Other)
  Sender: REGENERON
  Company Number: JP-BAYER-2024A125208

PATIENT

DRUGS (1)
  1. EYLEA HD [Suspect]
     Active Substance: AFLIBERCEPT
     Indication: Age-related macular degeneration
     Dosage: UNK,114.3 MG/ML, SOLUTION FOR INJECTION

REACTIONS (2)
  - Keratic precipitates [Recovering/Resolving]
  - Iritis [Recovered/Resolved]
